FAERS Safety Report 8864269 (Version 1)
Quarter: 2012Q4

REPORT INFORMATION
  Report Type: 
  Country: US (occurrence: US)
  Receive Date: 20121024
  Receipt Date: 20121024
  Transmission Date: 20130627
  Serious: No
  Sender: FDA-Public Use
  Company Number: US-AMGEN-USASP2011066669

PATIENT
  Age: 50 Year
  Sex: Male
  Weight: 74 kg

DRUGS (8)
  1. ENBREL [Suspect]
     Indication: PRODUCT USED FOR UNKNOWN INDICATION
     Dosage: 50 mg, qwk
  2. PREDNISONE [Concomitant]
     Dosage: 5 mg, UNK
     Route: 048
  3. COUMADIN                           /00014802/ [Concomitant]
     Dosage: 1 mg, UNK
     Route: 048
  4. LIPITOR [Concomitant]
     Dosage: 20 mg, UNK
     Route: 048
  5. NEXIUM                             /01479302/ [Concomitant]
     Dosage: 40 mg, UNK
     Route: 048
  6. OXYCODONE [Concomitant]
     Dosage: 5 mg, UNK
     Route: 048
  7. PRESTIGESIC [Concomitant]
     Dosage: UNK
  8. FANAPT [Concomitant]
     Dosage: 1 mg, UNK
     Route: 048

REACTIONS (5)
  - Visual acuity reduced [Unknown]
  - Headache [Unknown]
  - Eye irritation [Unknown]
  - Pain [Unknown]
  - Nasopharyngitis [Recovered/Resolved]
